FAERS Safety Report 10482370 (Version 2)
Quarter: 2014Q4

REPORT INFORMATION
  Report Type: Spontaneous
  Country: US (occurrence: US)
  Receive Date: 20140929
  Receipt Date: 20141107
  Transmission Date: 20150528
  Serious: Yes (Hospitalization)
  Sender: FDA-Public Use
  Company Number: US-BAYER-2014-142734

PATIENT
  Age: 26 Year
  Sex: Female
  Weight: 79.37 kg

DRUGS (4)
  1. ALBUTEROL. [Concomitant]
     Active Substance: ALBUTEROL
  2. SOLU-MEDROL [Concomitant]
     Active Substance: METHYLPREDNISOLONE SODIUM SUCCINATE
  3. MIRENA [Suspect]
     Active Substance: LEVONORGESTREL
     Indication: CONTRACEPTION
     Dosage: 20 MCG/24HR, CONT
     Route: 015
     Dates: start: 20080429, end: 20121114
  4. MOTRIN [Concomitant]
     Active Substance: IBUPROFEN

REACTIONS (7)
  - Device dislocation [None]
  - Medical device discomfort [None]
  - Injury [None]
  - Abdominal pain [None]
  - Uterine perforation [None]
  - Menorrhagia [None]
  - Device issue [None]

NARRATIVE: CASE EVENT DATE: 200805
